FAERS Safety Report 15289885 (Version 1)
Quarter: 2018Q3

REPORT INFORMATION
  Report Type: Report from Study
  Country: None (occurrence: FR)
  Receive Date: 20180817
  Receipt Date: 20180817
  Transmission Date: 20181010
  Serious: Yes (Hospitalization)
  Sender: FDA-Public Use
  Company Number: FR-MEDAC PHARMA, INC.-2053878

PATIENT
  Age: 33 Year
  Sex: Female
  Weight: 67 kg

DRUGS (2)
  1. GOLIMUMAB [Suspect]
     Active Substance: GOLIMUMAB
     Dates: start: 20150907, end: 20170806
  2. METOJECT [Suspect]
     Active Substance: METHOTREXATE SODIUM
     Indication: ANKYLOSING SPONDYLITIS
     Route: 058

REACTIONS (7)
  - Ectopic pregnancy [Recovered/Resolved]
  - Product use in unapproved indication [None]
  - Therapeutic response decreased [Unknown]
  - Pain [Unknown]
  - Treatment failure [Unknown]
  - Exposure during pregnancy [Recovered/Resolved]
  - Synovitis [Unknown]

NARRATIVE: CASE EVENT DATE: 2015
